FAERS Safety Report 6480474-5 (Version None)
Quarter: 2009Q4

REPORT INFORMATION
  Report Type: 
  Country: None (occurrence: None)
  Receive Date: 20091123
  Receipt Date: 20090804
  Transmission Date: 20100525
  Serious: No
  Sender: FDA-Public Use
  Company Number: 8049921

PATIENT
  Age: 71 Year
  Sex: Female
  Weight: 76.3 kg

DRUGS (14)
  1. CIMZIA [Suspect]
     Indication: RHEUMATOID ARTHRITIS
     Dosage: 400 MG SC
     Route: 058
     Dates: start: 20090613, end: 20090627
  2. HYDROXYZINE [Concomitant]
  3. PREDNISONE [Concomitant]
  4. ARAVA [Concomitant]
  5. SULFASALAZINE [Concomitant]
  6. NEURONTIN [Concomitant]
  7. FOSAMAX [Concomitant]
  8. OMEPRAZOLE [Concomitant]
  9. TRAZODONE HCL [Concomitant]
  10. FUROSEMIDE [Concomitant]
  11. LISINOPRIL [Concomitant]
  12. POTASSIUM [Concomitant]
  13. HYDROCODONE [Concomitant]
  14. ZOVIRAX [Concomitant]

REACTIONS (2)
  - ORAL HERPES [None]
  - URTICARIA [None]
